FAERS Safety Report 5026108-8 (Version None)
Quarter: 2006Q2

REPORT INFORMATION
  Report Type: 
  Country: None (occurrence: None)
  Receive Date: 20060612
  Receipt Date: 20060612
  Transmission Date: 20061013
  Serious: No
  Sender: FDA-Public Use
  Company Number: None

PATIENT
  Age: 54 Year
  Sex: Male
  Weight: 108.8633 kg

DRUGS (3)
  1. SULAR [Suspect]
     Indication: HYPERTENSION
     Dosage: ONE TAB DAILY
  2. SULAR [Suspect]
     Indication: RENAL FAILURE CHRONIC
     Dosage: ONE TAB DAILY
  3. SULAR [Suspect]
     Indication: TACHYCARDIA
     Dosage: ONE TAB DAILY

REACTIONS (1)
  - RENAL FUNCTION TEST ABNORMAL [None]
